FAERS Safety Report 10919428 (Version 4)
Quarter: 2015Q4

REPORT INFORMATION
  Report Type: Spontaneous
  Country: US (occurrence: US)
  Receive Date: 20150316
  Receipt Date: 20151005
  Transmission Date: 20160304
  Serious: Yes (Other)
  Sender: FDA-Public Use
  Company Number: US-GLAXOSMITHKLINE-US2015GSK032954

PATIENT
  Age: 55 Year
  Sex: Female
  Weight: 57.6 kg

DRUGS (3)
  1. TYKERB [Suspect]
     Active Substance: LAPATINIB DITOSYLATE
     Indication: BRAIN NEOPLASM MALIGNANT
     Dosage: 750 MG, QD
     Route: 048
     Dates: start: 20100918
  2. TYKERB [Suspect]
     Active Substance: LAPATINIB DITOSYLATE
     Indication: BREAST CANCER METASTATIC
     Dosage: 1250 MG, QD
     Route: 048
  3. TYKERB [Suspect]
     Active Substance: LAPATINIB DITOSYLATE
     Indication: MALIGNANT NEOPLASM OF SPINAL CORD
     Dosage: 750 MG, QD

REACTIONS (11)
  - Gastric disorder [Recovering/Resolving]
  - Insomnia [Unknown]
  - Cholecystectomy [Unknown]
  - Post cholecystectomy syndrome [Unknown]
  - Pancreatitis [Recovering/Resolving]
  - Drug dose omission [Recovered/Resolved]
  - Malaise [Unknown]
  - Abdominal discomfort [Recovering/Resolving]
  - Abdominal pain upper [Unknown]
  - Nausea [Recovering/Resolving]
  - Weight decreased [Unknown]

NARRATIVE: CASE EVENT DATE: 20150718
